FAERS Safety Report 8516454-5 (Version None)
Quarter: 2012Q3

REPORT INFORMATION
  Report Type: 
  Country: None (occurrence: None)
  Receive Date: 20120718
  Receipt Date: 20120713
  Transmission Date: 20120928
  Serious: No
  Sender: FDA-Public Use
  Company Number: US-PFIZER INC-2012131404

PATIENT
  Sex: Female

DRUGS (2)
  1. GENOTROPIN [Suspect]
     Indication: GROWTH HORMONE DEFICIENCY
     Dosage: 1.2 MG, 1X/DAY
     Route: 058
     Dates: start: 20041228
  2. GENOTROPIN [Suspect]
     Indication: SEPTO-OPTIC DYSPLASIA
     Dosage: UNK
     Route: 058
     Dates: start: 20110701, end: 20111001

REACTIONS (1)
  - HEADACHE [None]
